FAERS Safety Report 7518852-5 (Version None)
Quarter: 2011Q2

REPORT INFORMATION
  Report Type: 
  Country: None (occurrence: None)
  Receive Date: 20110602
  Receipt Date: 20110531
  Transmission Date: 20111010
  Serious: No
  Sender: FDA-Public Use
  Company Number: US-PFIZER INC-2011117954

PATIENT
  Sex: Female
  Weight: 68 kg

DRUGS (1)
  1. CALAN [Suspect]
     Indication: HYPERTENSION
     Dosage: UNK
     Route: 048
     Dates: start: 19960101

REACTIONS (1)
  - BLOOD CHOLESTEROL INCREASED [None]
